APPROVED DRUG PRODUCT: TEMAZ
Active Ingredient: TEMAZEPAM
Strength: 15MG
Dosage Form/Route: CAPSULE;ORAL
Application: A070564 | Product #001
Applicant: QUANTUM PHARMICS LTD
Approved: Oct 15, 1985 | RLD: No | RS: No | Type: DISCN